FAERS Safety Report 15735257 (Version 4)
Quarter: 2023Q1

REPORT INFORMATION
  Report Type: Spontaneous
  Country: US (occurrence: US)
  Receive Date: 20181218
  Receipt Date: 20230324
  Transmission Date: 20230418
  Serious: Yes (Other)
  Sender: FDA-Public Use
  Company Number: US-002147023-PHEH2018US053256

PATIENT
  Age: 65 Year
  Sex: Female

DRUGS (1)
  1. TASIGNA [Suspect]
     Active Substance: NILOTINIB
     Indication: Chronic myeloid leukaemia
     Dosage: 300 MG, BID
     Route: 048
     Dates: start: 201506, end: 201711

REACTIONS (15)
  - Barrett^s oesophagus [Unknown]
  - Peripheral vascular disorder [Unknown]
  - Type 2 diabetes mellitus [Unknown]
  - Diabetes mellitus [Unknown]
  - Peripheral arterial occlusive disease [Unknown]
  - Peripheral artery occlusion [Unknown]
  - Iliac artery stenosis [Unknown]
  - Injury [Unknown]
  - Pain in extremity [Unknown]
  - Hyperlipidaemia [Unknown]
  - Hypertension [Unknown]
  - Arthralgia [Unknown]
  - Pain [Unknown]
  - Emotional distress [Unknown]
  - Anxiety [Unknown]

NARRATIVE: CASE EVENT DATE: 20160725
